FAERS Safety Report 7656829-X (Version None)
Quarter: 2011Q3

REPORT INFORMATION
  Report Type: 
  Country: None (occurrence: None)
  Receive Date: 20110804
  Receipt Date: 20110729
  Transmission Date: 20111222
  Serious: Yes (Life-Threatening, Hospitalization, Disabling, Other)
  Sender: FDA-Public Use
  Company Number: GB-PFIZER INC-2010165570

PATIENT
  Age: 69 Year
  Sex: Female

DRUGS (16)
  1. AMIODARONE HCL [Suspect]
     Dosage: 200 MG, 1X/DAY
     Route: 048
     Dates: start: 20091001, end: 20101022
  2. BALSALAZIDE [Concomitant]
     Dosage: 750 MG, 3X/DAY
  3. CODEINE PHOSPHATE [Concomitant]
     Dosage: 60 MG, AS NEEDED
  4. SIMVASTATIN [Suspect]
     Dosage: 40 MG, 1X/DAY
     Route: 048
     Dates: start: 20061201, end: 20101022
  5. PARACETAMOL [Concomitant]
     Dosage: 1 G, 4X/DAY
  6. ASPIRIN [Concomitant]
     Dosage: 75 MG, 1X/DAY
  7. FLUCLOXACILLIN [Concomitant]
     Dosage: 500 MG, 4X/DAY
     Dates: start: 20101021
  8. BUMETANIDE [Concomitant]
     Dosage: 1 MG, 2X/DAY
     Dates: start: 20101028
  9. WARFARIN [Concomitant]
     Dosage: UNK, AS NEEDED
  10. PERINDOPRIL [Concomitant]
     Dosage: 2 MG, 1X/DAY
  11. FUROSEMIDE [Concomitant]
     Dosage: UNK
     Dates: end: 20101022
  12. NEBIVOLOL [Concomitant]
     Dosage: 3.75 MG, 1X/DAY
     Dates: end: 20101021
  13. NEBIVOLOL [Concomitant]
     Dosage: 5 MG, 1X/DAY
  14. TRIMETHOPRIM [Concomitant]
     Dosage: 200 MG, 2X/DAY
     Dates: start: 20101101
  15. CITALOPRAM [Concomitant]
     Dosage: 20 MG, 1X/DAY
  16. SPIRONOLACTONE [Concomitant]
     Dosage: 25 MG, 1X/DAY

REACTIONS (8)
  - RHABDOMYOLYSIS [None]
  - MOBILITY DECREASED [None]
  - BLOOD CREATININE INCREASED [None]
  - ALANINE AMINOTRANSFERASE INCREASED [None]
  - ANXIETY [None]
  - INTERNATIONAL NORMALISED RATIO INCREASED [None]
  - PAIN IN EXTREMITY [None]
  - ASTHENIA [None]
